FAERS Safety Report 17486241 (Version 1)
Quarter: 2020Q1

REPORT INFORMATION
  Report Type: Spontaneous
  Country: US (occurrence: US)
  Receive Date: 20200303
  Receipt Date: 20200303
  Transmission Date: 20200409
  Serious: No
  Sender: FDA-Public Use
  Company Number: US-ASTRAZENECA-2020SE29464

PATIENT
  Age: 925 Month
  Sex: Female
  Weight: 57.6 kg

DRUGS (6)
  1. FASENRA [Suspect]
     Active Substance: BENRALIZUMAB
     Indication: ASTHMA
     Dosage: 30UG/ML EVERY FOUR WEEKS
     Route: 058
     Dates: start: 20200121
  2. FASENRA [Suspect]
     Active Substance: BENRALIZUMAB
     Indication: MULTIPLE ALLERGIES
     Dosage: 30UG/ML EVERY FOUR WEEKS
     Route: 058
     Dates: start: 20200121
  3. FASENRA [Suspect]
     Active Substance: BENRALIZUMAB
     Indication: ASTHMA
     Dosage: 30UG/ML EVERY FOUR WEEKS
     Route: 058
     Dates: start: 201912
  4. FASENRA [Suspect]
     Active Substance: BENRALIZUMAB
     Indication: MULTIPLE ALLERGIES
     Dosage: 30UG/ML EVERY FOUR WEEKS
     Route: 058
     Dates: start: 201912
  5. FASENRA [Suspect]
     Active Substance: BENRALIZUMAB
     Indication: MULTIPLE ALLERGIES
     Dosage: 30UG/ML EVERY FOUR WEEKS
     Route: 058
     Dates: start: 202002
  6. FASENRA [Suspect]
     Active Substance: BENRALIZUMAB
     Indication: ASTHMA
     Dosage: 30UG/ML EVERY FOUR WEEKS
     Route: 058
     Dates: start: 202002

REACTIONS (4)
  - Rash pruritic [Unknown]
  - Therapeutic product effect incomplete [Unknown]
  - Heart rate increased [Not Recovered/Not Resolved]
  - Dyspnoea [Not Recovered/Not Resolved]

NARRATIVE: CASE EVENT DATE: 201912
